FAERS Safety Report 8057737-5 (Version None)
Quarter: 2012Q1

REPORT INFORMATION
  Report Type: 
  Country: None (occurrence: None)
  Receive Date: 20120120
  Receipt Date: 20120111
  Transmission Date: 20120608
  Serious: No
  Sender: FDA-Public Use
  Company Number: US-BIOGENIDEC-2012BI001417

PATIENT
  Sex: Female

DRUGS (1)
  1. TYSABRI [Suspect]
     Indication: MULTIPLE SCLEROSIS
     Route: 042
     Dates: start: 20070523

REACTIONS (10)
  - LOSS OF CONTROL OF LEGS [None]
  - HAEMORRHAGE [None]
  - OEDEMA PERIPHERAL [None]
  - NASOPHARYNGITIS [None]
  - LACERATION [None]
  - HYPOAESTHESIA [None]
  - PAIN [None]
  - DEPRESSION [None]
  - FALL [None]
  - FEELING COLD [None]
